FAERS Safety Report 14552148 (Version 2)
Quarter: 2018Q2

REPORT INFORMATION
  Report Type: Spontaneous
  Country: US (occurrence: US)
  Receive Date: 20180220
  Receipt Date: 20180414
  Transmission Date: 20180711
  Serious: No
  Sender: FDA-Public Use
  Company Number: US-JNJFOC-20180200363

PATIENT
  Age: 26 Year
  Sex: Male

DRUGS (2)
  1. MENS ROGAINE [Suspect]
     Active Substance: MINOXIDIL
     Route: 061
  2. MENS ROGAINE [Suspect]
     Active Substance: MINOXIDIL
     Indication: PROPHYLAXIS
     Dosage: SINCE 1999. ^USES MORNING AND NIGHT MOST DAYS. MISSES DOSE AT NIGHT^ AND ^1-2X PER DAY^.
     Route: 061
     Dates: start: 19980101

REACTIONS (3)
  - Product use in unapproved indication [Unknown]
  - Therapeutic response unexpected [Unknown]
  - Inappropriate schedule of drug administration [Unknown]

NARRATIVE: CASE EVENT DATE: 19980101
